FAERS Safety Report 14073543 (Version 3)
Quarter: 2017Q4

REPORT INFORMATION
  Report Type: Report from Study
  Country: AU (occurrence: AU)
  Receive Date: 20171011
  Receipt Date: 20171103
  Transmission Date: 20180321
  Serious: Yes (Death, Hospitalization, Other)
  Sender: FDA-Public Use
  Company Number: AU-AMGEN-AUSSP2016181026

PATIENT
  Age: 86 Year
  Sex: Female
  Weight: 50 kg

DRUGS (29)
  1. RENITEC [Concomitant]
     Active Substance: ENALAPRIL MALEATE
     Dosage: 20 MG, BID
  2. MINIPRESS [Concomitant]
     Active Substance: PRAZOSIN HYDROCHLORIDE
  3. DURO-K [Concomitant]
     Dosage: 600 MG, QD
     Route: 048
  4. LASIX [Concomitant]
     Active Substance: FUROSEMIDE
     Dosage: 40 MG, UNK
  5. METOPROLOL TARTRATE. [Concomitant]
     Active Substance: METOPROLOL TARTRATE
     Dosage: 50 MG, 1/2 TABLET BID
     Route: 048
  6. METRONIDAZOLE. [Concomitant]
     Active Substance: METRONIDAZOLE
     Dosage: 0.75 MG, UNK
     Route: 061
  7. SUSTAGEN [Concomitant]
     Dosage: 250 ML, QD
  8. FLIXOTIDE [Concomitant]
     Active Substance: FLUTICASONE PROPIONATE
     Dosage: 125 MUG, UNK
     Route: 045
  9. MAREVAN [Concomitant]
     Active Substance: WARFARIN SODIUM
     Dosage: 1 MG, UNK
  10. MAREVAN [Concomitant]
     Active Substance: WARFARIN SODIUM
     Dosage: 5 MG, UNK
  11. SALICYLIC ACID. [Concomitant]
     Active Substance: SALICYLIC ACID
     Dosage: 2 %, UNK
     Route: 061
  12. PROLIA [Suspect]
     Active Substance: DENOSUMAB
     Indication: OSTEOPOROSIS POSTMENOPAUSAL
  13. FRUSEMIDE [Concomitant]
     Active Substance: FUROSEMIDE
     Dosage: 80-120 MG
  14. ATENOLOL. [Concomitant]
     Active Substance: ATENOLOL
     Dosage: 50 MG, BID
  15. PANTOPRAZOLE [Concomitant]
     Active Substance: PANTOPRAZOLE
     Dosage: 40 MG, QD
  16. PRAZOSIN. [Concomitant]
     Active Substance: PRAZOSIN
     Dosage: 2 MG, BID
  17. MAGNESIUM [Concomitant]
     Active Substance: MAGNESIUM
     Dosage: 1000 MG, QD
  18. NORSPAN [Concomitant]
     Active Substance: BUPRENORPHINE
     Dosage: 20 MUG, QWK
     Route: 062
  19. PROLIA [Suspect]
     Active Substance: DENOSUMAB
     Indication: OSTEOPOROTIC FRACTURE
     Dosage: 60 MG, Q6MO
     Route: 065
     Dates: start: 20131010
  20. DIGOXIN. [Concomitant]
     Active Substance: DIGOXIN
     Dosage: 62.5 MUG, 2 TABLETS, QD
     Route: 048
  21. PANADOL [Concomitant]
     Active Substance: ACETAMINOPHEN
     Dosage: UNK UNK, TID
  22. VITAMIN D [Concomitant]
     Active Substance: CHOLECALCIFEROL
     Dosage: UNK UNK, QD
  23. THYROXIN [Concomitant]
     Active Substance: LEVOTHYROXINE
     Dosage: 75 MG, QOD
  24. MAREVAN [Concomitant]
     Active Substance: WARFARIN SODIUM
     Dosage: 3 MG, UNK
  25. SPIRONOLACTONE. [Concomitant]
     Active Substance: SPIRONOLACTONE
     Dosage: 25 MG, QD
     Route: 048
  26. LIPITOR [Concomitant]
     Active Substance: ATORVASTATIN CALCIUM
  27. EUTROXSIG [Concomitant]
     Active Substance: LEVOTHYROXINE SODIUM
     Dosage: .075 MG, EVERY LATERNATE DAY
  28. MAG SUP [Concomitant]
  29. SYSTANE (HYPROMELLOSE 2910 (4000 MPA.S)) [Concomitant]
     Active Substance: HYPROMELLOSE 2910 (4000 MPA.S)
     Dosage: 1-2 DROPS, AS NECESSARY

REACTIONS (8)
  - General physical health deterioration [Unknown]
  - Chest pain [Unknown]
  - Skin cancer [Fatal]
  - Breast cancer [Fatal]
  - International normalised ratio abnormal [Unknown]
  - Metastases to liver [Unknown]
  - Fall [Unknown]
  - Femur fracture [Recovered/Resolved]

NARRATIVE: CASE EVENT DATE: 201506
